FAERS Safety Report 14914975 (Version 1)
Quarter: 2018Q2

REPORT INFORMATION
  Report Type: Spontaneous
  Country: US (occurrence: US)
  Receive Date: 20180501
  Receipt Date: 20180501
  Transmission Date: 20180711
  Serious: Yes (Disabling)
  Sender: FDA-Public Use
  Company Number: None

PATIENT
  Age: 55 Year
  Sex: Female
  Weight: 89.55 kg

DRUGS (7)
  1. VITAMIN SUPPLEMENT [Concomitant]
     Active Substance: VITAMINS
  2. PERCOCET [Concomitant]
     Active Substance: ACETAMINOPHEN\OXYCODONE HYDROCHLORIDE
  3. VALIUM [Concomitant]
     Active Substance: DIAZEPAM
  4. BUPROBRION [Concomitant]
  5. MULTIHANCE [Suspect]
     Active Substance: GADOBENATE DIMEGLUMINE
     Indication: SCAN WITH CONTRAST
     Dosage: ?          QUANTITY:1 VIAL;?
     Route: 058
     Dates: start: 20161018, end: 20161018
  6. LOSARTIN [Concomitant]
     Active Substance: LOSARTAN
  7. ZANAFLEX [Concomitant]
     Active Substance: TIZANIDINE HYDROCHLORIDE

REACTIONS (7)
  - Toxicity to various agents [None]
  - Alopecia [None]
  - Chronic fatigue syndrome [None]
  - Skin disorder [None]
  - Feeling abnormal [None]
  - Fibromyalgia [None]
  - Pain [None]
